FAERS Safety Report 15722790 (Version 2)
Quarter: 2019Q1

REPORT INFORMATION
  Report Type: Spontaneous
  Country: PT (occurrence: PT)
  Receive Date: 20181214
  Receipt Date: 20190111
  Transmission Date: 20190417
  Serious: Yes (Life-Threatening, Hospitalization)
  Sender: FDA-Public Use
  Company Number: PT-JNJFOC-20181211345

PATIENT
  Age: 69 Year
  Sex: Male

DRUGS (3)
  1. OXAZEPAM. [Concomitant]
     Active Substance: OXAZEPAM
     Indication: PSYCHOMOTOR HYPERACTIVITY
     Route: 065
  2. HALOPERIDOL. [Suspect]
     Active Substance: HALOPERIDOL
     Indication: PSYCHOMOTOR HYPERACTIVITY
     Route: 048
  3. QUETIAPINE FUMARATE. [Suspect]
     Active Substance: QUETIAPINE FUMARATE
     Indication: PSYCHOMOTOR HYPERACTIVITY
     Route: 065

REACTIONS (8)
  - Neuroleptic malignant syndrome [Recovering/Resolving]
  - Prescribed underdose [Unknown]
  - Off label use [Unknown]
  - Agitation [Unknown]
  - Cardio-respiratory arrest [Recovered/Resolved]
  - Pyrexia [Recovered/Resolved]
  - Cardiac arrest [Recovered/Resolved]
  - Fatigue [Unknown]
